FAERS Safety Report 7199532-5 (Version None)
Quarter: 2010Q4

REPORT INFORMATION
  Report Type: 
  Country: None (occurrence: None)
  Receive Date: 20101228
  Receipt Date: 20101216
  Transmission Date: 20110411
  Serious: Yes (Hospitalization)
  Sender: FDA-Public Use
  Company Number: PHHY2010JP85703

PATIENT
  Age: 45 Year
  Sex: Male

DRUGS (2)
  1. CYCLOSPORINE [Suspect]
     Dosage: 200 MG/DAY
  2. PREDONINE [Concomitant]
     Indication: IMMUNOSUPPRESSANT DRUG THERAPY
     Dosage: 5 MG/DAY

REACTIONS (6)
  - ERYTHEMA [None]
  - GRANULOMA [None]
  - ROSACEA [None]
  - SARCOIDOSIS [None]
  - SEBORRHOEIC DERMATITIS [None]
  - SKIN EXFOLIATION [None]
